FAERS Safety Report 21704169 (Version 1)
Quarter: 2022Q4

REPORT INFORMATION
  Report Type: Spontaneous
  Country: US (occurrence: US)
  Receive Date: 20221209
  Receipt Date: 20221209
  Transmission Date: 20230113
  Serious: No
  Sender: FDA-Public Use
  Company Number: US-BIOGEN-2022BI01132245

PATIENT
  Age: 35 Year
  Sex: Male

DRUGS (4)
  1. VUMERITY [Suspect]
     Active Substance: DIROXIMEL FUMARATE
     Indication: Multiple sclerosis
     Dosage: MAINTENANCE DOSE: 462 MG (ADMINISTERED AS TWO 231 MG CAPSULES) TWICE A DAY, ORALLY
     Route: 050
     Dates: start: 20220414
  2. VUMERITY [Suspect]
     Active Substance: DIROXIMEL FUMARATE
     Dosage: 231 MG TWICE A DAY, ORALLY, FOR 7 DAYS
     Route: 050
  3. VUMERITY [Suspect]
     Active Substance: DIROXIMEL FUMARATE
     Dosage: DECREASED HIS DOSAGE 1-231MG TWICE PER DAY
     Route: 050
  4. VUMERITY [Suspect]
     Active Substance: DIROXIMEL FUMARATE
     Dosage: RETURNED TO FULL DOSAGE (462MG TWICE PER DAY)
     Route: 050

REACTIONS (4)
  - Intentional product misuse [Unknown]
  - Constipation [Unknown]
  - Rash pruritic [Unknown]
  - Flushing [Unknown]

NARRATIVE: CASE EVENT DATE: 20220401
